FAERS Safety Report 7443112-0 (Version None)
Quarter: 2011Q2

REPORT INFORMATION
  Report Type: 
  Country: None (occurrence: None)
  Receive Date: 20110428
  Receipt Date: 20110425
  Transmission Date: 20111010
  Serious: Yes (Other)
  Sender: FDA-Public Use
  Company Number: US-ABBOTT-11P-163-0721758-00

PATIENT
  Sex: Female
  Weight: 109.87 kg

DRUGS (4)
  1. GLUCOPHAGE [Concomitant]
     Indication: DIABETES MELLITUS
  2. HUMIRA [Suspect]
     Dosage: HUMIRA PEN, 1 IN 2 WEEKS
     Route: 058
     Dates: start: 20110421
  3. HUMIRA [Suspect]
     Dosage: HUMIRA PEN, 1 IN 2 WEEKS
     Route: 058
     Dates: start: 20100101, end: 20110101
  4. HUMIRA [Suspect]
     Indication: RHEUMATOID ARTHRITIS
     Route: 058
     Dates: start: 20040101, end: 20100101

REACTIONS (2)
  - ARTHRALGIA [None]
  - OSTEOARTHRITIS [None]
